FAERS Safety Report 5076484-5 (Version None)
Quarter: 2006Q3

REPORT INFORMATION
  Report Type: 
  Country: None (occurrence: None)
  Receive Date: 20060810
  Receipt Date: 20060518
  Transmission Date: 20061208
  Serious: Yes (Death, Hospitalization)
  Sender: FDA-Public Use
  Company Number: US-BRISTOL-MYERS SQUIBB COMPANY-13382098

PATIENT
  Age: 69 Year
  Sex: Female

DRUGS (8)
  1. PACLITAXEL [Suspect]
     Indication: NON-SMALL CELL LUNG CANCER
     Route: 042
     Dates: start: 20060413, end: 20060413
  2. CARBOPLATIN [Suspect]
     Indication: BREAST CANCER
     Route: 042
     Dates: start: 20060413, end: 20060413
  3. NEURONTIN [Concomitant]
     Dates: start: 20060501
  4. VICODIN [Concomitant]
     Dates: start: 20060501
  5. ZIAC [Concomitant]
     Dates: start: 20010101
  6. ASPIRIN [Concomitant]
     Dates: start: 20030101, end: 20060518
  7. NORVASC [Concomitant]
     Dates: start: 20010101, end: 20060518
  8. PLETAL [Concomitant]
     Dates: start: 20020101, end: 20060518

REACTIONS (2)
  - CEREBRAL HAEMORRHAGE [None]
  - MALIGNANT NEOPLASM PROGRESSION [None]
